FAERS Safety Report 16705761 (Version 2)
Quarter: 2019Q3

REPORT INFORMATION
  Report Type: Spontaneous
  Country: US (occurrence: US)
  Receive Date: 20190815
  Receipt Date: 20190909
  Transmission Date: 20191004
  Serious: Yes (Other)
  Sender: FDA-Public Use
  Company Number: US-PFIZER INC-2019345615

PATIENT
  Age: 62 Year
  Sex: Male
  Weight: 95 kg

DRUGS (3)
  1. METFORMIN [Concomitant]
     Active Substance: METFORMIN HYDROCHLORIDE
     Indication: DIABETES MELLITUS
     Dosage: 1000 MG, 2X/DAY
  2. VIAGRA [Suspect]
     Active Substance: SILDENAFIL CITRATE
     Indication: ANGIOPATHY
     Dosage: 40 MG, ALTERNATE DAY
  3. INSULIN [Concomitant]
     Active Substance: INSULIN NOS
     Indication: DIABETES MELLITUS
     Dosage: 34 IU, 1X/DAY

REACTIONS (3)
  - Product use in unapproved indication [Unknown]
  - Prostate cancer [Unknown]
  - Off label use [Unknown]
